FAERS Safety Report 7679620-7 (Version None)
Quarter: 2011Q3

REPORT INFORMATION
  Report Type: 
  Country: None (occurrence: None)
  Receive Date: 20110809
  Receipt Date: 20110726
  Transmission Date: 20111222
  Serious: Yes (Hospitalization)
  Sender: FDA-Public Use
  Company Number: JHP201100303

PATIENT
  Age: 63 Year
  Sex: Male

DRUGS (16)
  1. VERAPAMIL HYDROCHLORIDE [Concomitant]
  2. DANTRIUM [Suspect]
     Dosage: ORAL
     Route: 048
     Dates: start: 20110706, end: 20110708
  3. MUCOSA (REBAMIPIDE) [Concomitant]
  4. DAIKENTYUTO (HERBAL EXTRACT NOS) [Concomitant]
  5. GASMOTIN (MOSAPRIDE CITRATE) [Concomitant]
  6. TERBINAFINE HCL [Concomitant]
  7. CLONAZEPAM [Concomitant]
  8. AKINETON [Concomitant]
  9. INDERAL [Concomitant]
  10. SIGMART (NICORANDIL) [Concomitant]
  11. BIOFERMIN (BACILLUS SUBTILIS, LACTOBACILLUS ACIDOPHILUS, STREPTOCOCCUS [Concomitant]
  12. TAKEPRON (LANSOPRAZOLE) [Concomitant]
  13. DANTROLENE SODIUM [Suspect]
     Indication: BLOOD CREATINE PHOSPHOKINASE INCREASED
     Dosage: 20 MG, BID, INTRAVENOUS
     Route: 042
     Dates: start: 20110704, end: 20110705
  14. SEPAZON (CLOXAZOPAN) [Concomitant]
  15. KONSUBEN [Concomitant]
  16. ROHYPNOL (FLUNITRAZEPAM) [Concomitant]

REACTIONS (2)
  - ACUTE RESPIRATORY FAILURE [None]
  - DYSPHAGIA [None]
